FAERS Safety Report 4498006-X (Version None)
Quarter: 2004Q4

REPORT INFORMATION
  Report Type: 
  Country: None (occurrence: None)
  Receive Date: 20041109
  Receipt Date: 20041109
  Transmission Date: 20050328
  Serious: Yes (Hospitalization, Disabling)
  Sender: FDA-Public Use
  Company Number: None

PATIENT
  Age: 56 Year
  Sex: Male
  Weight: 81.8 kg

DRUGS (15)
  1. AMIODARONE [Suspect]
     Indication: ATRIAL FIBRILLATION
     Dosage: 200MG BID ORAL
     Route: 048
     Dates: start: 20040804, end: 20040817
  2. ALBUTEROL [Concomitant]
  3. ASPIRIN [Concomitant]
  4. DIGOXIN [Concomitant]
  5. FOLATE [Concomitant]
  6. IPRATROPIUM MDI [Concomitant]
  7. TRIAMCINOLONE MDI [Concomitant]
  8. LEVOTHYROXINE SODIUM [Concomitant]
  9. LISINOPRIL [Concomitant]
  10. METOPROLOL [Concomitant]
  11. M.V.I. [Concomitant]
  12. OMEPRAZOLE [Concomitant]
  13. SALMETEROL MDI [Concomitant]
  14. THIAMINE [Concomitant]
  15. TRAZODONE HCL [Concomitant]

REACTIONS (13)
  - ANGER [None]
  - ASTHENIA [None]
  - ATROPHY [None]
  - DYSSTASIA [None]
  - EXCITABILITY [None]
  - GUILLAIN-BARRE SYNDROME [None]
  - INCONTINENCE [None]
  - MOVEMENT DISORDER [None]
  - NEUROPATHY PERIPHERAL [None]
  - PALATAL OEDEMA [None]
  - PARAESTHESIA [None]
  - TREATMENT NONCOMPLIANCE [None]
  - URINARY RETENTION [None]
